FAERS Safety Report 19252390 (Version 2)
Quarter: 2021Q2

REPORT INFORMATION
  Report Type: Spontaneous
  Country: US (occurrence: US)
  Receive Date: 20210513
  Receipt Date: 20210618
  Transmission Date: 20210717
  Serious: Yes (Death, Hospitalization)
  Sender: FDA-Public Use
  Company Number: US-ACADIA PHARMACEUTICALS INC.-ACA-2021-PIM-001742

PATIENT
  Sex: Female
  Weight: 81 kg

DRUGS (10)
  1. NUPLAZID [Suspect]
     Active Substance: PIMAVANSERIN TARTRATE
     Indication: DEMENTIA ALZHEIMER^S TYPE
     Dosage: 34 MILLIGRAM, QD
     Route: 065
     Dates: start: 2020, end: 202010
  2. NUPLAZID [Interacting]
     Active Substance: PIMAVANSERIN TARTRATE
     Indication: DEMENTIA
  3. FUROSEMIDE. [Concomitant]
     Active Substance: FUROSEMIDE
  4. OMEPRAZOLE. [Concomitant]
     Active Substance: OMEPRAZOLE
  5. QUETIAPINE. [Concomitant]
     Active Substance: QUETIAPINE
  6. POTASSIUM [Concomitant]
     Active Substance: POTASSIUM
  7. MORPHINE [Interacting]
     Active Substance: MORPHINE
     Indication: PAIN
  8. MEMANTINE. [Concomitant]
     Active Substance: MEMANTINE
  9. CRESTOR [Concomitant]
     Active Substance: ROSUVASTATIN CALCIUM
  10. NUPLAZID [Interacting]
     Active Substance: PIMAVANSERIN TARTRATE
     Indication: HALLUCINATION

REACTIONS (7)
  - Drug ineffective for unapproved indication [Unknown]
  - Renal disorder [Unknown]
  - Off label use [Unknown]
  - Dementia Alzheimer^s type [Fatal]
  - Dementia [Fatal]
  - Drug interaction [Unknown]
  - Pain [Unknown]

NARRATIVE: CASE EVENT DATE: 2020
